FAERS Safety Report 16976693 (Version 2)
Quarter: 2020Q1

REPORT INFORMATION
  Report Type: Spontaneous
  Country: DE (occurrence: DE)
  Receive Date: 20191030
  Receipt Date: 20200226
  Transmission Date: 20200409
  Serious: Yes (Hospitalization)
  Sender: FDA-Public Use
  Company Number: DE-GALDERMA-DE19062716

PATIENT
  Age: 50 Year
  Sex: Female
  Weight: 82 kg

DRUGS (14)
  1. DOXYCYCLINE. [Suspect]
     Active Substance: DOXYCYCLINE
     Indication: DERMATITIS
     Route: 065
  2. TOCILIZUMAB. [Concomitant]
     Active Substance: TOCILIZUMAB
     Indication: RHEUMATOID ARTHRITIS
     Dosage: 162 MG
     Route: 058
  3. TOCILIZUMAB. [Concomitant]
     Active Substance: TOCILIZUMAB
     Route: 058
     Dates: start: 20150619, end: 20190614
  4. VIGANTOLETTEN [Concomitant]
     Active Substance: CHOLECALCIFEROL
     Indication: PRODUCT USED FOR UNKNOWN INDICATION
     Route: 065
  5. CORTISONE [Concomitant]
     Active Substance: CORTISONE
     Indication: RHEUMATOID ARTHRITIS
     Dosage: 2 MG
     Route: 065
  6. TOCILIZUMAB. [Concomitant]
     Active Substance: TOCILIZUMAB
     Indication: RHEUMATOID ARTHRITIS
     Route: 058
     Dates: start: 20171110
  7. TORASEMIDE [Concomitant]
     Active Substance: TORSEMIDE
     Indication: PRODUCT USED FOR UNKNOWN INDICATION
     Route: 065
  8. METOPROLOL. [Concomitant]
     Active Substance: METOPROLOL
     Indication: PRODUCT USED FOR UNKNOWN INDICATION
     Dosage: 47.5 MG
     Route: 065
  9. FOLIC ACID. [Concomitant]
     Active Substance: FOLIC ACID
     Indication: PRODUCT USED FOR UNKNOWN INDICATION
     Route: 065
  10. PREGABALIN. [Concomitant]
     Active Substance: PREGABALIN
     Indication: PRODUCT USED FOR UNKNOWN INDICATION
     Dosage: 150 MG
     Route: 065
  11. OMEP [Concomitant]
     Active Substance: OMEPRAZOLE
     Indication: PRODUCT USED FOR UNKNOWN INDICATION
     Dosage: 20 MG
     Route: 065
  12. CORTISONE [Concomitant]
     Active Substance: CORTISONE
     Indication: RHEUMATOID ARTHRITIS
     Dosage: 6 MG
     Route: 065
  13. DOXYCYCLINE. [Concomitant]
     Active Substance: DOXYCYCLINE
     Indication: BIRTH MARK
     Dosage: 200 MG
     Route: 065
  14. LEVODOPA [Concomitant]
     Active Substance: LEVODOPA
     Indication: PRODUCT USED FOR UNKNOWN INDICATION
     Dosage: 25 MG IN THE EVENING, 50 MG AT NIGHT
     Route: 065

REACTIONS (20)
  - Bronchitis [Unknown]
  - Dyspnoea [Unknown]
  - Fluid retention [Recovered/Resolved]
  - Inappropriate schedule of product administration [Recovered/Resolved]
  - Contusion [Recovered/Resolved]
  - Tooth disorder [Unknown]
  - Musculoskeletal stiffness [Unknown]
  - Dermatitis [Recovered/Resolved]
  - Product use in unapproved indication [Recovered/Resolved]
  - Polyneuropathy [Recovering/Resolving]
  - Wound haemorrhage [Unknown]
  - Cough [Unknown]
  - Impaired healing [Recovered/Resolved]
  - Vomiting [Recovered/Resolved]
  - Weight decreased [Recovered/Resolved]
  - Vitamin D deficiency [Unknown]
  - Rheumatoid lung [Unknown]
  - Rib fracture [Unknown]
  - Rheumatoid arthritis [Recovered/Resolved]
  - Pain [Unknown]

NARRATIVE: CASE EVENT DATE: 20150619
